FAERS Safety Report 23089340 (Version 2)
Quarter: 2023Q4

REPORT INFORMATION
  Report Type: Report from Study
  Country: US (occurrence: US)
  Receive Date: 20231020
  Receipt Date: 20231219
  Transmission Date: 20240110
  Serious: Yes (Other)
  Sender: FDA-Public Use
  Company Number: US-BAYER-2023A116960

PATIENT
  Age: 78 Year
  Sex: Male

DRUGS (1)
  1. NUBEQA [Suspect]
     Active Substance: DAROLUTAMIDE
     Indication: Prostate cancer
     Dosage: 600 MG, BID
     Route: 048
     Dates: start: 20230615

REACTIONS (6)
  - Thrombosis [Not Recovered/Not Resolved]
  - Peripheral swelling [None]
  - Joint swelling [None]
  - Arthralgia [None]
  - Pain in extremity [None]
  - Product dose omission in error [None]

NARRATIVE: CASE EVENT DATE: 20230801
